FAERS Safety Report 16054087 (Version 3)
Quarter: 2019Q2

REPORT INFORMATION
  Report Type: Spontaneous
  Country: US (occurrence: US)
  Receive Date: 20190308
  Receipt Date: 20190409
  Transmission Date: 20190711
  Serious: Yes (Other)
  Sender: FDA-Public Use
  Company Number: US-PFIZER INC-2019099561

PATIENT
  Age: 72 Year
  Sex: Female
  Weight: 62.59 kg

DRUGS (4)
  1. XELJANZ XR [Suspect]
     Active Substance: TOFACITINIB CITRATE
     Indication: WRIST DEFORMITY
  2. METHOTREXATE. [Suspect]
     Active Substance: METHOTREXATE
     Indication: RHEUMATOID ARTHRITIS
     Dosage: 15 MG, WEEKLY, (6 TABLETS BY MOUTH A WEEK ON WEDNESDAY)
     Route: 048
     Dates: start: 2007
  3. PREDNISONE. [Suspect]
     Active Substance: PREDNISONE
     Indication: RHEUMATOID ARTHRITIS
     Dosage: UNK
     Dates: start: 2007
  4. XELJANZ XR [Suspect]
     Active Substance: TOFACITINIB CITRATE
     Indication: RHEUMATOID ARTHRITIS
     Dosage: 11 MG, DAILY
     Route: 048
     Dates: end: 20190220

REACTIONS (10)
  - Sinus disorder [Unknown]
  - Nasopharyngitis [Unknown]
  - Lung disorder [Unknown]
  - Productive cough [Unknown]
  - Pneumonia [Unknown]
  - Malaise [Unknown]
  - Hypoacusis [Not Recovered/Not Resolved]
  - Ear discomfort [Not Recovered/Not Resolved]
  - Wrist deformity [Unknown]
  - Drug ineffective [Unknown]

NARRATIVE: CASE EVENT DATE: 20190201
